FAERS Safety Report 6620303-X (Version None)
Quarter: 2010Q1

REPORT INFORMATION
  Report Type: 
  Country: None (occurrence: None)
  Receive Date: 20100309
  Receipt Date: 20090930
  Transmission Date: 20100710
  Serious: Yes (Other)
  Sender: FDA-Public Use
  Company Number: ZA-JNJFOC-20090901593

PATIENT
  Age: 2 Year
  Sex: Male
  Weight: 10.7 kg

DRUGS (4)
  1. TOPAMAX [Suspect]
     Indication: EPILEPSY
     Route: 048
  2. KEPPRA [Concomitant]
     Route: 065
  3. EPILIM [Concomitant]
     Route: 065
  4. URBANOL [Concomitant]
     Route: 065

REACTIONS (3)
  - ANXIETY [None]
  - DEPRESSION [None]
  - THERAPEUTIC RESPONSE DECREASED [None]
